FAERS Safety Report 10032834 (Version 3)
Quarter: 2014Q2

REPORT INFORMATION
  Report Type: Spontaneous
  Country: IT (occurrence: IT)
  Receive Date: 20140324
  Receipt Date: 20140515
  Transmission Date: 20141212
  Serious: Yes (Other)
  Sender: FDA-Public Use
  Company Number: IT-PFIZER INC-2014080269

PATIENT
  Age: 55 Year
  Sex: Female

DRUGS (3)
  1. GENOTROPIN MINIQUICK [Suspect]
     Indication: EMPTY SELLA SYNDROME
     Dosage: 0.1 MG/KG, ALTERNATE DAY
     Route: 058
     Dates: start: 20130504, end: 20140221
  2. EUTIROX [Concomitant]
     Indication: HYPOTHYROIDISM
     Dosage: 25 UG, UNK
     Route: 048
  3. CORTONE ACETATE [Concomitant]
     Indication: ADRENAL INSUFFICIENCY
     Dosage: 31.25 MG, UNK
     Route: 048

REACTIONS (1)
  - Sarcomatosis [Not Recovered/Not Resolved]
